FAERS Safety Report 19739488 (Version 1)
Quarter: 2021Q3

REPORT INFORMATION
  Report Type: Spontaneous
  Country: GB (occurrence: GB)
  Receive Date: 20210823
  Receipt Date: 20210823
  Transmission Date: 20211014
  Serious: Yes (Hospitalization)
  Sender: FDA-Public Use
  Company Number: GB-B.I. PHARMACEUTICALS,INC./RIDGEFIELD-2021-BI-122693

PATIENT
  Age: 26 Year
  Sex: Female
  Weight: 61.35 kg

DRUGS (1)
  1. JARDIANCE [Suspect]
     Active Substance: EMPAGLIFLOZIN
     Indication: DIABETIC KETOACIDOSIS
     Dosage: UNKNOWN
     Route: 030
     Dates: start: 20210811, end: 20210815

REACTIONS (1)
  - Blood ketone body [Recovered/Resolved]

NARRATIVE: CASE EVENT DATE: 20210811
